FAERS Safety Report 16021163 (Version 1)
Quarter: 2019Q1

REPORT INFORMATION
  Report Type: Spontaneous
  Country: PT (occurrence: PT)
  Receive Date: 20190301
  Receipt Date: 20190301
  Transmission Date: 20190418
  Serious: Yes (Hospitalization, Other)
  Sender: FDA-Public Use
  Company Number: PT-ACCORD-109596

PATIENT
  Age: 33 Year
  Sex: Female

DRUGS (3)
  1. MEROPENEM. [Suspect]
     Active Substance: MEROPENEM
     Indication: PRODUCT USED FOR UNKNOWN INDICATION
     Dosage: UNK
  2. TIGECYCLINE. [Suspect]
     Active Substance: TIGECYCLINE
     Indication: PNEUMONIA KLEBSIELLA
     Dosage: UNK
  3. COLISTIN [Suspect]
     Active Substance: COLISTIN
     Indication: PNEUMONIA KLEBSIELLA
     Dosage: UNK

REACTIONS (3)
  - Drug ineffective [Unknown]
  - Drug resistance [Unknown]
  - Pathogen resistance [Recovered/Resolved]
